FAERS Safety Report 9973201 (Version 1)
Quarter: 2014Q1

REPORT INFORMATION
  Report Type: Spontaneous
  Country: US (occurrence: None)
  Receive Date: 20140127
  Receipt Date: 20140127
  Transmission Date: 20141002
  Serious: Yes (Other)
  Sender: FDA-Public Use
  Company Number: 1221687

PATIENT
  Age: 77 Year
  Sex: Male

DRUGS (4)
  1. RITUXAN (RITUXIMAB) [Suspect]
     Indication: PRODUCT USED FOR UNKNOWN INDICATION
  2. VINCRISTINE (VINCRISTINE) [Suspect]
     Indication: PRODUCT USED FOR UNKNOWN INDICATION
  3. ADRIAMYCIN (DOXORUBICIN) INJ. USP 10MG/5ML [Suspect]
     Indication: PRODUCT USED FOR UNKNOWN INDICATION
  4. CYTOXAN (CYCLOPHOSPHAMIDE) [Suspect]
     Indication: PRODUCT USED FOR UNKNOWN INDICATION

REACTIONS (2)
  - Neutropenia [None]
  - Sepsis [None]
